FAERS Safety Report 5028631-9 (Version None)
Quarter: 2006Q2

REPORT INFORMATION
  Report Type: 
  Country: None (occurrence: None)
  Receive Date: 20060501
  Receipt Date: 20060130
  Transmission Date: 20061013
  Serious: No
  Sender: FDA-Public Use
  Company Number: 200611087US

PATIENT
  Age: 55 Year
  Sex: Female
  Weight: 60 kg

DRUGS (5)
  1. KETEK [Suspect]
     Indication: SINUSITIS
     Dosage: PO
     Route: 048
     Dates: start: 20060117, end: 20060120
  2. HYOSCYAMINE SULFATE (SYMAX) [Concomitant]
  3. RALOXIFENE HYDROCHLORIDE (EVISTA) [Concomitant]
  4. LEXAPRO [Concomitant]
  5. NAPROXEN SODIUM (ALEVE) [Concomitant]

REACTIONS (16)
  - ABDOMINAL PAIN UPPER [None]
  - ARTHRALGIA [None]
  - CHEST PAIN [None]
  - CHILLS [None]
  - DIARRHOEA [None]
  - DIZZINESS [None]
  - DYSPNOEA [None]
  - EYE PAIN [None]
  - HEART RATE IRREGULAR [None]
  - INFLUENZA LIKE ILLNESS [None]
  - LIVER DISORDER [None]
  - MIGRAINE [None]
  - NAUSEA [None]
  - ORAL MUCOSAL BLISTERING [None]
  - SWELLING FACE [None]
  - VISION BLURRED [None]
